FAERS Safety Report 5616625-1 (Version None)
Quarter: 2008Q1

REPORT INFORMATION
  Report Type: 
  Country: None (occurrence: None)
  Receive Date: 20080207
  Receipt Date: 20071112
  Transmission Date: 20080703
  Serious: No
  Sender: FDA-Public Use
  Company Number: A0693910A

PATIENT
  Sex: Male

DRUGS (6)
  1. PAXIL CR [Suspect]
     Indication: DRUG USE FOR UNKNOWN INDICATION
     Route: 048
  2. LOTREL [Concomitant]
  3. WELLBUTRIN [Concomitant]
  4. OXYCODONE HCL [Concomitant]
  5. ZANAFLEX [Concomitant]
  6. GABAPENTIN [Concomitant]

REACTIONS (4)
  - ADVERSE EVENT [None]
  - BLOOD TESTOSTERONE DECREASED [None]
  - PITUITARY ENLARGEMENT [None]
  - PITUITARY TUMOUR BENIGN [None]
